FAERS Safety Report 18177859 (Version 1)
Quarter: 2020Q3

REPORT INFORMATION
  Report Type: Spontaneous
  Country: US (occurrence: US)
  Receive Date: 20200820
  Receipt Date: 20200820
  Transmission Date: 20201103
  Serious: No
  Sender: FDA-Public Use
  Company Number: US-JAZZ-2014-US-001014

PATIENT
  Age: 24 Year
  Sex: Male

DRUGS (19)
  1. RISPERDAL [Concomitant]
     Active Substance: RISPERIDONE
  2. PROZAC [Concomitant]
     Active Substance: FLUOXETINE HYDROCHLORIDE
  3. TRILEPTAL [Concomitant]
     Active Substance: OXCARBAZEPINE
  4. SELENIUM SULFIDE. [Concomitant]
     Active Substance: SELENIUM SULFIDE
  5. VITAMIN D [ERGOCALCIFEROL] [Concomitant]
     Active Substance: ERGOCALCIFEROL
  6. CLONAZEPAM. [Concomitant]
     Active Substance: CLONAZEPAM
  7. SENNALAX [SENNA ALEXANDRINA EXTRACT] [Concomitant]
  8. XYREM [Suspect]
     Active Substance: SODIUM OXYBATE
     Indication: CATAPLEXY
     Dosage: 2.5 GRAM, QD
     Route: 048
     Dates: start: 201511
  9. OMNITROPE [Concomitant]
     Active Substance: SOMATROPIN
  10. HUMATROPE [Concomitant]
     Active Substance: SOMATROPIN
  11. BUSPIRONE HCL [Concomitant]
     Active Substance: BUSPIRONE HYDROCHLORIDE
  12. VITAMIN C [Concomitant]
     Active Substance: ASCORBIC ACID
  13. XYREM [Suspect]
     Active Substance: SODIUM OXYBATE
     Indication: SLEEP DISORDER
     Dosage: 1.5 G, BID
     Route: 048
     Dates: start: 201312, end: 201401
  14. ZYRTEC [Concomitant]
     Active Substance: CETIRIZINE HYDROCHLORIDE
  15. ABILIFY [Concomitant]
     Active Substance: ARIPIPRAZOLE
  16. ATIVAN [Concomitant]
     Active Substance: LORAZEPAM
  17. ALPRAZOLAM. [Concomitant]
     Active Substance: ALPRAZOLAM
  18. XYREM [Suspect]
     Active Substance: SODIUM OXYBATE
     Indication: NARCOLEPSY
     Dosage: DOSE ADJUSTMENT
     Route: 048
     Dates: start: 201401, end: 201511
  19. COLACE [Concomitant]
     Active Substance: DOCUSATE SODIUM

REACTIONS (8)
  - Joint injury [Unknown]
  - Behaviour disorder [Not Recovered/Not Resolved]
  - Condition aggravated [Recovering/Resolving]
  - Screaming [Unknown]
  - Crying [Recovering/Resolving]
  - Cognitive disorder [Recovering/Resolving]
  - Scoliosis [Recovering/Resolving]
  - Logorrhoea [Recovering/Resolving]

NARRATIVE: CASE EVENT DATE: 20200401
